FAERS Safety Report 23966552 (Version 1)
Quarter: 2024Q2

REPORT INFORMATION
  Report Type: Spontaneous
  Country: GB (occurrence: GB)
  Receive Date: 20240612
  Receipt Date: 20240612
  Transmission Date: 20240716
  Serious: Yes (Disabling, Other)
  Sender: FDA-Public Use
  Company Number: None

PATIENT
  Sex: Female

DRUGS (6)
  1. LATANOPROST [Suspect]
     Active Substance: LATANOPROST
     Dosage: ONCE A DAY AT NIGHT
     Dates: start: 20240529, end: 20240531
  2. ADALIMUMAB [Concomitant]
     Active Substance: ADALIMUMAB\ISOPROPYL ALCOHOL
     Dates: start: 20210901
  3. METHOTREXATE [Concomitant]
     Active Substance: METHOTREXATE
     Indication: Rheumatoid arthritis
     Dates: start: 20200801
  4. DEXAMETHASONE [Concomitant]
     Active Substance: DEXAMETHASONE
     Dates: start: 20240501
  5. RANBAXY UK ACICLOVIR [Concomitant]
     Dates: start: 20240501
  6. CYCLOPENTOLATE [Concomitant]
     Active Substance: CYCLOPENTOLATE
     Dates: start: 20240501

REACTIONS (3)
  - Photophobia [Unknown]
  - Eye pain [Recovered/Resolved]
  - Photosensitivity reaction [Recovered/Resolved]

NARRATIVE: CASE EVENT DATE: 20240530
